FAERS Safety Report 4549227-9 (Version None)
Quarter: 2005Q1

REPORT INFORMATION
  Report Type: 
  Country: None (occurrence: None)
  Receive Date: 20050106
  Receipt Date: 20041222
  Transmission Date: 20050727
  Serious: Yes (Hospitalization)
  Sender: FDA-Public Use
  Company Number: A03200403277

PATIENT
  Age: 67 Year
  Sex: Female

DRUGS (6)
  1. PLAQUENIL [Suspect]
     Dosage: 200 MG BID - ORAL
     Route: 048
     Dates: start: 20020701
  2. ANAKINRA - SOLUTION - 100 MG [Suspect]
     Indication: RHEUMATOID ARTHRITIS
     Dosage: 100 MG QD - SUBCUTANEOUS
     Route: 058
     Dates: start: 20020815
  3. ACETAMINOPHEN AND OXYCODONE HCL [Concomitant]
  4. FUROSEMIDE [Concomitant]
  5. POTASSIUM CHLORIDE [Concomitant]
  6. INSULIN GLARGINE [Concomitant]

REACTIONS (7)
  - ALANINE AMINOTRANSFERASE INCREASED [None]
  - ASPARTATE AMINOTRANSFERASE INCREASED [None]
  - BLOOD CHLORIDE DECREASED [None]
  - BLOOD LACTATE DEHYDROGENASE INCREASED [None]
  - BLOOD POTASSIUM DECREASED [None]
  - HEPATIC STEATOSIS [None]
  - PANCREATITIS [None]
